FAERS Safety Report 20345377 (Version 2)
Quarter: 2022Q1

REPORT INFORMATION
  Report Type: Spontaneous
  Country: TR (occurrence: TR)
  Receive Date: 20220118
  Receipt Date: 20220202
  Transmission Date: 20220423
  Serious: Yes (Life-Threatening, Other)
  Sender: FDA-Public Use
  Company Number: TR-002147023-NVSC2022TR007381

PATIENT
  Age: 50 Year
  Sex: Female

DRUGS (1)
  1. XOLAIR [Suspect]
     Active Substance: OMALIZUMAB
     Indication: Idiopathic urticaria
     Dosage: 150 MG SOLUTION FOR INJECTION IN PRE-FILLED SYRINGE
     Route: 065

REACTIONS (3)
  - Anaphylactic shock [Unknown]
  - Myocardial infarction [Unknown]
  - Product supply issue [Unknown]
